FAERS Safety Report 10066791 (Version 1)
Quarter: 2014Q2

REPORT INFORMATION
  Report Type: Report from Study
  Country: BR (occurrence: BR)
  Receive Date: 20140408
  Receipt Date: 20140408
  Transmission Date: 20141212
  Serious: Yes (Death, Other)
  Sender: FDA-Public Use
  Company Number: PHHY2014BR042036

PATIENT
  Sex: Female
  Weight: 72 kg

DRUGS (3)
  1. ACLASTA [Suspect]
     Indication: OSTEOPOROSIS
     Dosage: UNK ONCE A YEAR
     Route: 042
     Dates: start: 2010
  2. RIVOTRIL [Concomitant]
     Indication: SLEEP DISORDER
     Dosage: 1 DF, DAILY
  3. TRYPTANOL [Concomitant]
     Indication: ANXIETY
     Dosage: UNK, DAILY

REACTIONS (2)
  - Infection [Fatal]
  - Hip fracture [Fatal]
